APPROVED DRUG PRODUCT: CLOBETASOL PROPIONATE
Active Ingredient: CLOBETASOL PROPIONATE
Strength: 0.05%
Dosage Form/Route: SHAMPOO;TOPICAL
Application: A209871 | Product #001
Applicant: HIKMA PHARMACEUTICALS USA INC
Approved: Oct 27, 2017 | RLD: No | RS: No | Type: DISCN